FAERS Safety Report 5353531-4 (Version None)
Quarter: 2007Q2

REPORT INFORMATION
  Report Type: 
  Country: None (occurrence: None)
  Receive Date: 20070612
  Receipt Date: 20070531
  Transmission Date: 20071010
  Serious: No
  Sender: FDA-Public Use
  Company Number: US-ASTRAZENECA-2006UW10732

PATIENT
  Age: 6319 Day
  Sex: Female
  Weight: 110.5 kg

DRUGS (2)
  1. SEROQUEL [Suspect]
     Route: 048
     Dates: start: 20031105
  2. NO MATCH [Concomitant]
     Dates: start: 20040101

REACTIONS (1)
  - DIABETES MELLITUS [None]
